FAERS Safety Report 10981601 (Version 2)
Quarter: 2015Q2

REPORT INFORMATION
  Report Type: Spontaneous
  Country: US (occurrence: US)
  Receive Date: 20150402
  Receipt Date: 20150525
  Transmission Date: 20150821
  Serious: No
  Sender: FDA-Public Use
  Company Number: US-JNJFOC-20140717920

PATIENT
  Age: 73 Year
  Sex: Female
  Weight: 58.06 kg

DRUGS (8)
  1. PROBIOTIC [Concomitant]
     Active Substance: PROBIOTICS NOS
     Indication: LACTOSE INTOLERANCE
     Route: 065
  2. FLAXSEED [Concomitant]
     Active Substance: FLAX SEED
     Indication: COELIAC DISEASE
     Route: 065
  3. IMODIUM MULTI-SYMPTOM RELIEF [Suspect]
     Active Substance: DIMETHICONE\LOPERAMIDE HYDROCHLORIDE
     Indication: DIARRHOEA
     Dosage: EVERY 3-4 HOURS
     Route: 048
     Dates: start: 20141003
  4. ZYRTEC [Concomitant]
     Active Substance: CETIRIZINE HYDROCHLORIDE
     Indication: ALLERGIC RESPIRATORY DISEASE
     Dosage: 10 YEARS
     Route: 065
  5. LOSARTAN [Concomitant]
     Active Substance: LOSARTAN
     Indication: HYPERTENSION
     Route: 065
  6. MULTIVITAMINS [Concomitant]
     Active Substance: VITAMINS
     Indication: VITAMIN SUPPLEMENTATION
     Dosage: 7 YEARS
     Route: 065
  7. IMODIUM MULTI-SYMPTOM RELIEF [Suspect]
     Active Substance: DIMETHICONE\LOPERAMIDE HYDROCHLORIDE
     Route: 048
  8. GLUTARASE [Concomitant]
     Indication: COELIAC DISEASE
     Route: 065

REACTIONS (1)
  - Drug effect decreased [Recovered/Resolved]

NARRATIVE: CASE EVENT DATE: 20140903
